FAERS Safety Report 21917048 (Version 1)
Quarter: 2023Q1

REPORT INFORMATION
  Report Type: Spontaneous
  Country: CH (occurrence: CH)
  Receive Date: 20230126
  Receipt Date: 20230126
  Transmission Date: 20230417
  Serious: Yes (Other)
  Sender: FDA-Public Use
  Company Number: CH-009507513-2301CHE001757

PATIENT

DRUGS (4)
  1. KEYTRUDA [Suspect]
     Active Substance: PEMBROLIZUMAB
     Indication: Laryngeal squamous cell carcinoma
     Dosage: UNK
  2. CARBOPLATIN [Concomitant]
     Active Substance: CARBOPLATIN
  3. FLUOROURACIL [Concomitant]
     Active Substance: FLUOROURACIL
  4. ERBITUX [Concomitant]
     Active Substance: CETUXIMAB

REACTIONS (2)
  - Skin squamous cell carcinoma recurrent [Unknown]
  - Off label use [Unknown]
